FAERS Safety Report 22104688 (Version 1)
Quarter: 2023Q1

REPORT INFORMATION
  Report Type: Spontaneous
  Country: US (occurrence: US)
  Receive Date: 20230316
  Receipt Date: 20230316
  Transmission Date: 20230417
  Serious: No
  Sender: FDA-Public Use
  Company Number: US-009507513-2303USA003620

PATIENT
  Sex: Male

DRUGS (7)
  1. JANUVIA [Suspect]
     Active Substance: SITAGLIPTIN PHOSPHATE
     Indication: Diabetes mellitus
     Dosage: 100 MILLIGRAM, DAILY (QD)
     Route: 048
     Dates: start: 2013
  2. METFORMIN [Concomitant]
     Active Substance: METFORMIN HYDROCHLORIDE
     Dosage: 1000 MILLIGRAM, BID
  3. PLAVIX [Concomitant]
     Active Substance: CLOPIDOGREL BISULFATE
  4. ASPIRIN [Concomitant]
     Active Substance: ASPIRIN
  5. COREG [Concomitant]
     Active Substance: CARVEDILOL
  6. FINASTERIDE [Concomitant]
     Active Substance: FINASTERIDE
  7. RAMIPRIL [Concomitant]
     Active Substance: RAMIPRIL

REACTIONS (3)
  - Blood glucose increased [Not Recovered/Not Resolved]
  - Product use issue [Unknown]
  - Product dose omission issue [Unknown]

NARRATIVE: CASE EVENT DATE: 20230101
